FAERS Safety Report 9609058 (Version 2)
Quarter: 2013Q4

REPORT INFORMATION
  Report Type: Spontaneous
  Country: US (occurrence: US)
  Receive Date: 20131009
  Receipt Date: 20131126
  Transmission Date: 20140711
  Serious: No
  Sender: FDA-Public Use
  Company Number: US-009507513-1310USA003667

PATIENT
  Sex: Female
  Weight: 58.96 kg

DRUGS (3)
  1. CLARITIN-D-24 [Suspect]
     Indication: HYPERSENSITIVITY
     Dosage: 10 MG, QD
     Route: 048
  2. CLARITIN-D-24 [Suspect]
     Indication: LACRIMATION INCREASED
  3. CLARITIN-D-24 [Suspect]
     Indication: SNEEZING

REACTIONS (2)
  - Insomnia [Recovered/Resolved]
  - Wrong technique in drug usage process [Unknown]
